FAERS Safety Report 8851148 (Version 1)
Quarter: 2012Q4

REPORT INFORMATION
  Report Type: 
  Country: US (occurrence: US)
  Receive Date: 20121019
  Receipt Date: 20121019
  Transmission Date: 20130627
  Serious: No
  Sender: FDA-Public Use
  Company Number: US-BRISTOL-MYERS SQUIBB COMPANY-16847774

PATIENT
  Sex: Female

DRUGS (1)
  1. YERVOY [Suspect]
     Dosage: Strength:Yervoy 50mg/10mL
Quantity 2
Yervoy 200mg/40mL   00003-2328-22, Lot 918609
Exp. 6/2014

REACTIONS (1)
  - Adverse event [Unknown]
